FAERS Safety Report 5254023-3 (Version None)
Quarter: 2007Q1

REPORT INFORMATION
  Report Type: 
  Country: None (occurrence: None)
  Receive Date: 20061201
  Receipt Date: 20060809
  Transmission Date: 20070707
  Serious: No
  Sender: FDA-Public Use
  Company Number: 2006PV019169

PATIENT
  Age: 62 Year
  Sex: Female
  Weight: 58.9676 kg

DRUGS (7)
  1. BYETTA [Suspect]
     Indication: DIABETES MELLITUS NON-INSULIN-DEPENDENT
     Dosage: 5 MCG;BID;SC
     Route: 058
     Dates: start: 20060806, end: 20060809
  2. LANTUS [Concomitant]
  3. GLUCOPHAGE [Concomitant]
  4. AMARYL [Concomitant]
  5. PRILOSEC [Concomitant]
  6. ACTOS /USA/ [Concomitant]
  7. VYTORIN [Concomitant]

REACTIONS (16)
  - ANOREXIA [None]
  - ASTHENOPIA [None]
  - BLOOD GLUCOSE DECREASED [None]
  - BLOOD GLUCOSE FLUCTUATION [None]
  - BLOOD GLUCOSE INCREASED [None]
  - DIARRHOEA [None]
  - FEELING ABNORMAL [None]
  - FEELING JITTERY [None]
  - FREQUENT BOWEL MOVEMENTS [None]
  - HYPERACUSIS [None]
  - INJECTION SITE ERYTHEMA [None]
  - MENTAL IMPAIRMENT [None]
  - NAUSEA [None]
  - PANIC REACTION [None]
  - PHOTOSENSITIVITY REACTION [None]
  - VISION BLURRED [None]
